FAERS Safety Report 19776752 (Version 1)
Quarter: 2021Q3

REPORT INFORMATION
  Report Type: Spontaneous
  Country: US (occurrence: US)
  Receive Date: 20210901
  Receipt Date: 20210901
  Transmission Date: 20211014
  Serious: Yes (Other)
  Sender: FDA-Public Use
  Company Number: US-PFIZER INC-202101105373

PATIENT
  Age: 36 Year
  Sex: Female
  Weight: 88.45 kg

DRUGS (1)
  1. CHANTIX [Suspect]
     Active Substance: VARENICLINE TARTRATE
     Indication: SMOKING CESSATION THERAPY
     Dosage: 1 TABLET BY MOUTH THREE TIMES DAILY
     Route: 048
     Dates: start: 202001, end: 202001

REACTIONS (2)
  - Off label use [Unknown]
  - Cardiac flutter [Recovering/Resolving]

NARRATIVE: CASE EVENT DATE: 202001
